FAERS Safety Report 17715373 (Version 3)
Quarter: 2020Q2

REPORT INFORMATION
  Report Type: Report from Study
  Country: US (occurrence: US)
  Receive Date: 20200427
  Receipt Date: 20200526
  Transmission Date: 20200714
  Serious: Yes (Hospitalization)
  Sender: FDA-Public Use
  Company Number: NVSC2020US112888

PATIENT
  Sex: Female

DRUGS (1)
  1. KISQALI [Suspect]
     Active Substance: RIBOCICLIB
     Indication: BREAST CANCER METASTATIC
     Dosage: 600 MG, QD
     Route: 048

REACTIONS (6)
  - Fatigue [Recovering/Resolving]
  - Oral pain [Recovering/Resolving]
  - Fall [Recovering/Resolving]
  - Oral mucosal blistering [Recovering/Resolving]
  - Nausea [Recovered/Resolved]
  - Stomatitis [Recovering/Resolving]
